FAERS Safety Report 9435846 (Version 1)
Quarter: 2013Q3

REPORT INFORMATION
  Report Type: Spontaneous
  Country: US (occurrence: None)
  Receive Date: 20130801
  Receipt Date: 20130801
  Transmission Date: 20140515
  Serious: Yes (Other)
  Sender: FDA-Public Use
  Company Number: None

PATIENT
  Age: 10 Year
  Sex: Male
  Weight: 29.48 kg

DRUGS (1)
  1. CONCERTA [Suspect]
     Indication: ATTENTION DEFICIT/HYPERACTIVITY DISORDER
     Dates: start: 20130510, end: 20130731

REACTIONS (7)
  - Headache [None]
  - Anger [None]
  - Aggression [None]
  - Social avoidant behaviour [None]
  - Fatigue [None]
  - Feeling abnormal [None]
  - Product substitution issue [None]
